FAERS Safety Report 7153500-8 (Version None)
Quarter: 2010Q4

REPORT INFORMATION
  Report Type: 
  Country: None (occurrence: None)
  Receive Date: 20101213
  Receipt Date: 20101207
  Transmission Date: 20110411
  Serious: Yes (Other)
  Sender: FDA-Public Use
  Company Number: B0687756A

PATIENT
  Age: 63 Year
  Sex: Female
  Weight: 81 kg

DRUGS (1)
  1. AUGMENTIN [Suspect]
     Indication: CHALAZION
     Route: 048
     Dates: start: 20101013, end: 20101020

REACTIONS (5)
  - CHROMATURIA [None]
  - FAECES PALE [None]
  - HEPATITIS [None]
  - MALAISE [None]
  - YELLOW SKIN [None]
